FAERS Safety Report 10507323 (Version 1)
Quarter: 2014Q4

REPORT INFORMATION
  Report Type: Spontaneous
  Country: US (occurrence: None)
  Receive Date: 20141008
  Receipt Date: 20141008
  Transmission Date: 20150528
  Serious: Yes (Hospitalization)
  Sender: FDA-Public Use
  Company Number: None

PATIENT
  Age: 60 Year
  Sex: Male
  Weight: 106.8 kg

DRUGS (1)
  1. CYTARABINE. [Suspect]
     Active Substance: CYTARABINE
     Dates: end: 20140919

REACTIONS (4)
  - Sepsis [None]
  - Arrhythmia [None]
  - Unresponsive to stimuli [None]
  - Ventricular tachycardia [None]

NARRATIVE: CASE EVENT DATE: 20141003
